FAERS Safety Report 9060022 (Version 1)
Quarter: 2013Q1

REPORT INFORMATION
  Report Type: Spontaneous
  Country: US (occurrence: None)
  Receive Date: 20130207
  Receipt Date: 20130207
  Transmission Date: 20140127
  Serious: Yes (Hospitalization)
  Sender: FDA-Public Use
  Company Number: None

PATIENT
  Age: 68 Year
  Sex: Male
  Weight: 58.97 kg

DRUGS (2)
  1. TAMSULOSIN HCL [Suspect]
     Route: 048
     Dates: start: 201112, end: 201212
  2. FINASTERIDE [Concomitant]

REACTIONS (5)
  - Syncope [None]
  - Head injury [None]
  - Joint injury [None]
  - Lip injury [None]
  - Dysstasia [None]
